FAERS Safety Report 11748408 (Version 1)
Quarter: 2015Q4

REPORT INFORMATION
  Report Type: Spontaneous
  Country: US (occurrence: None)
  Receive Date: 20151116
  Receipt Date: 20151116
  Transmission Date: 20160304
  Serious: Yes (Hospitalization)
  Sender: FDA-Public Use
  Company Number: None

PATIENT
  Age: 61 Year
  Sex: Male
  Weight: 99.4 kg

DRUGS (2)
  1. RIBAVIRIN. [Suspect]
     Active Substance: RIBAVIRIN
     Indication: HEPATITIS C
     Route: 048
     Dates: start: 20151030, end: 20151112
  2. DASABUVIR/OMBITASVIR/PARITAPREVIR/RITONAVIR [Suspect]
     Active Substance: DASABUVIR\OMBITASVIR\PARITAPREVIR\RITONAVIR
     Indication: HEPATITIS C
     Route: 048
     Dates: start: 20151030, end: 20151112

REACTIONS (13)
  - Blood creatinine increased [None]
  - Asthenia [None]
  - Insomnia [None]
  - Decreased appetite [None]
  - Dizziness postural [None]
  - Hypotension [None]
  - Chromaturia [None]
  - Acute kidney injury [None]
  - Haemoglobin decreased [None]
  - Dehydration [None]
  - Pyrexia [None]
  - Urine output decreased [None]
  - Blood urea increased [None]

NARRATIVE: CASE EVENT DATE: 20151112
